FAERS Safety Report 25059963 (Version 1)
Quarter: 2025Q1

REPORT INFORMATION
  Report Type: Report from Study
  Country: ZA (occurrence: ZA)
  Receive Date: 20250310
  Receipt Date: 20250310
  Transmission Date: 20250408
  Serious: Yes (Hospitalization)
  Sender: ALEXION PHARMACEUTICALS
  Company Number: ZA-AstraZeneca-CH-00818879A

PATIENT
  Age: 52 Year

DRUGS (4)
  1. DAPAGLIFLOZIN [Suspect]
     Active Substance: DAPAGLIFLOZIN
     Indication: Diabetes mellitus
  2. ISMO [Concomitant]
     Active Substance: ISOSORBIDE MONONITRATE
     Indication: Angina pectoris
  3. ECOTRIN [Concomitant]
     Active Substance: ASPIRIN
  4. Lipogen [Concomitant]
     Indication: Blood cholesterol

REACTIONS (2)
  - Cellulitis [Unknown]
  - Synovial cyst [Unknown]
